FAERS Safety Report 16491071 (Version 1)
Quarter: 2019Q3

REPORT INFORMATION
  Report Type: Spontaneous
  Country: US (occurrence: US)
  Receive Date: 20190627
  Receipt Date: 20190627
  Transmission Date: 20191004
  Serious: Yes (Hospitalization)
  Sender: FDA-Public Use
  Company Number: None

PATIENT
  Age: 61 Year
  Sex: Female

DRUGS (13)
  1. BIOTIN [Concomitant]
     Active Substance: BIOTIN
  2. MULTIVITAMIN [Concomitant]
     Active Substance: VITAMINS
  3. OLOPATADINE. [Concomitant]
     Active Substance: OLOPATADINE
  4. PROGESTERONE. [Concomitant]
     Active Substance: PROGESTERONE
  5. XELJANZ [Suspect]
     Active Substance: TOFACITINIB CITRATE
     Indication: RHEUMATOID ARTHRITIS
     Route: 048
     Dates: start: 20190125
  6. MONTELUKAST [Concomitant]
     Active Substance: MONTELUKAST SODIUM
  7. FISH OIL [Concomitant]
     Active Substance: FISH OIL
  8. COLLAGEN [Concomitant]
     Active Substance: COLLAGEN
  9. CYMBALTA [Concomitant]
     Active Substance: DULOXETINE HYDROCHLORIDE
  10. PREMARIN [Concomitant]
     Active Substance: ESTROGENS, CONJUGATED
  11. SINGULAIR [Concomitant]
     Active Substance: MONTELUKAST SODIUM
  12. CALCIUM [Concomitant]
     Active Substance: CALCIUM
  13. ROGAINE [Concomitant]
     Active Substance: MINOXIDIL

REACTIONS (2)
  - Therapy cessation [None]
  - Hip arthroplasty [None]
